FAERS Safety Report 19164705 (Version 1)
Quarter: 2021Q2

REPORT INFORMATION
  Report Type: Spontaneous
  Country: US (occurrence: US)
  Receive Date: 20210421
  Receipt Date: 20210421
  Transmission Date: 20210717
  Serious: No
  Sender: FDA-Public Use
  Company Number: US-ALKERMES INC.-ALK-2020-004413

PATIENT
  Age: 52 Year
  Sex: Male

DRUGS (3)
  1. VIVITROL [Suspect]
     Active Substance: NALTREXONE
     Dosage: 380 MILLIGRAM, QMO
     Route: 030
     Dates: start: 201708, end: 201708
  2. NALOXONE [Suspect]
     Active Substance: NALOXONE
     Indication: PROPHYLAXIS
     Dosage: 0.8 MILLIGRAM, ONE TIME DOSE
     Route: 030
  3. VIVITROL [Suspect]
     Active Substance: NALTREXONE
     Indication: DRUG DEPENDENCE
     Dosage: 380 MILLIGRAM, QMO
     Route: 030

REACTIONS (4)
  - Drug dependence [Unknown]
  - Toxicity to various agents [Recovered/Resolved]
  - Withdrawal syndrome [Unknown]
  - Drug screen positive [Recovered/Resolved]

NARRATIVE: CASE EVENT DATE: 201708
